FAERS Safety Report 9752682 (Version 1)
Quarter: 2013Q4

REPORT INFORMATION
  Report Type: Spontaneous
  Country: US (occurrence: None)
  Receive Date: 20131212
  Receipt Date: 20131212
  Transmission Date: 20140711
  Serious: Yes (Death, Life-Threatening, Hospitalization, Congenital Anomaly, Other)
  Sender: FDA-Public Use
  Company Number: None

PATIENT
  Age: 49 Year
  Sex: Male
  Weight: 112.49 kg

DRUGS (22)
  1. ABILIFY GENERIC [Suspect]
     Indication: SCHIZOAFFECTIVE DISORDER
     Dosage: 3380 MG TOTAL 13 PILLS TOTAL DIVED. ALL TAKEN FOR DAY AND NIGHT. BY MOUTH. IF REFUSING MEDICATION IN PSYCHE HOSPITAL, I AM INJECTED SEDATIVES.
     Route: 048
     Dates: start: 19841201
  2. DEPAKOTE GENERIC [Suspect]
  3. ANTANUAL [Suspect]
  4. ZYPREXA GENERIC [Suspect]
  5. LITHIUM GENERIC [Suspect]
  6. ATIVAN [Suspect]
  7. ASPIRIN [Concomitant]
  8. ADVIL [Concomitant]
  9. OMEGA-C [Concomitant]
  10. B-12 [Concomitant]
  11. VITAMIN B-1 [Concomitant]
  12. VITAMIN C [Concomitant]
  13. VITAMIN COMPLEX MULTI-VITAMIN [Concomitant]
  14. VITAMIN D [Concomitant]
  15. VITAMIN E [Concomitant]
  16. LIPITOR GENERIC [Suspect]
  17. HALDOL [Concomitant]
  18. AMBIEN [Concomitant]
  19. RESPIRERDOL [Concomitant]
  20. CIALIS [Concomitant]
  21. VIAGARA [Concomitant]
  22. MELLARIAL [Concomitant]

REACTIONS (7)
  - Drug hypersensitivity [None]
  - Victim of abuse [None]
  - Blood cholesterol increased [None]
  - Mania [None]
  - Anxiety [None]
  - Delusion [None]
  - Psychotic disorder [None]
